FAERS Safety Report 9898557 (Version 2)
Quarter: 2014Q1

REPORT INFORMATION
  Report Type: Spontaneous
  Country: US (occurrence: US)
  Receive Date: 20140214
  Receipt Date: 20140214
  Transmission Date: 20141002
  Serious: No
  Sender: FDA-Public Use
  Company Number: US-GILEAD-2011-0042305

PATIENT
  Sex: Female

DRUGS (30)
  1. LETAIRIS [Suspect]
     Indication: PULMONARY HYPERTENSION
     Route: 048
  2. LITHIUM [Suspect]
     Indication: AFFECTIVE DISORDER
  3. CELEXA [Suspect]
     Indication: DEPRESSION
  4. RISPERDAL [Suspect]
  5. ATIVAN [Suspect]
     Indication: ANXIETY
  6. VENTAVIS [Concomitant]
  7. METOPROLOL SUCCINATE [Concomitant]
     Indication: HYPERTENSION
  8. ASPIRIN [Concomitant]
  9. COUMADIN [Concomitant]
  10. AMILORIDE [Concomitant]
  11. LIPITOR [Concomitant]
     Indication: BLOOD CHOLESTEROL
  12. ADVAIR [Concomitant]
     Indication: CHRONIC OBSTRUCTIVE PULMONARY DISEASE
  13. OXYGEN [Concomitant]
     Indication: CHRONIC OBSTRUCTIVE PULMONARY DISEASE
  14. SPIRIVA HANDIHALER [Concomitant]
     Indication: CHRONIC OBSTRUCTIVE PULMONARY DISEASE
  15. PROAIR HFA [Concomitant]
     Indication: CHRONIC OBSTRUCTIVE PULMONARY DISEASE
  16. ALBUTEROL [Concomitant]
     Indication: CHRONIC OBSTRUCTIVE PULMONARY DISEASE
  17. PRILOSEC [Concomitant]
  18. CULTURELLE [Concomitant]
  19. TRAMADOL HYDROCHLORIDE [Concomitant]
     Indication: MIGRAINE
  20. FLEXERIL [Concomitant]
     Indication: PAIN
  21. NYSTOP [Concomitant]
     Indication: RASH
  22. FLUOCINONIDE [Concomitant]
     Indication: SKIN ULCER
  23. PREVIDENT [Concomitant]
  24. ELAVIL [Concomitant]
     Indication: DEPRESSION
  25. FOLIC ACID [Concomitant]
  26. FERROUS SULFATE [Concomitant]
  27. MAGNESIUM [Concomitant]
  28. VITAMIN B6 [Concomitant]
  29. VITAMIN B12 [Concomitant]
  30. CALCITRIOL [Concomitant]

REACTIONS (2)
  - Drug interaction [Unknown]
  - Depression [Recovering/Resolving]
